FAERS Safety Report 4586159-4 (Version None)
Quarter: 2005Q1

REPORT INFORMATION
  Report Type: 
  Country: None (occurrence: None)
  Receive Date: 20050125
  Receipt Date: 20041102
  Transmission Date: 20050727
  Serious: No
  Sender: FDA-Public Use
  Company Number: US_0411107937

PATIENT
  Age: 54 Year
  Sex: Female

DRUGS (2)
  1. FORTEO [Suspect]
     Indication: OSTEOPOROSIS
     Dosage: 20 UG DAY
     Dates: start: 20030701
  2. COUMADIN [Concomitant]

REACTIONS (2)
  - INJECTION SITE HAEMORRHAGE [None]
  - VISUAL ACUITY REDUCED [None]
